FAERS Safety Report 8357533-5 (Version None)
Quarter: 2012Q2

REPORT INFORMATION
  Report Type: 
  Country: None (occurrence: None)
  Receive Date: 20120514
  Receipt Date: 20120502
  Transmission Date: 20120825
  Serious: Yes (Hospitalization)
  Sender: FDA-Public Use
  Company Number: US-ACTELION-A-US2012-65440

PATIENT

DRUGS (3)
  1. TRACLEER [Suspect]
     Indication: PULMONARY ARTERIAL HYPERTENSION
     Dosage: UNK
     Route: 049
     Dates: start: 20091125
  2. OXYGEN [Concomitant]
  3. ADCIRCA [Concomitant]

REACTIONS (2)
  - STENT PLACEMENT [None]
  - CORONARY ARTERY STENOSIS [None]
